FAERS Safety Report 6902426-0 (Version None)
Quarter: 2010Q3

REPORT INFORMATION
  Report Type: 
  Country: None (occurrence: None)
  Receive Date: 20100802
  Receipt Date: 20100802
  Transmission Date: 20110219
  Serious: Yes (Hospitalization)
  Sender: FDA-Public Use
  Company Number: None

PATIENT
  Age: 79 Year
  Sex: Male
  Weight: 90.9 kg

DRUGS (1)
  1. FUROSEMIDE [Suspect]
     Indication: CARDIAC FAILURE CONGESTIVE
     Dosage: 120 MG EVERY DAY PO
     Route: 048
     Dates: start: 20011219, end: 20100423

REACTIONS (4)
  - DIARRHOEA [None]
  - DIVERTICULUM [None]
  - LYMPHADENOPATHY [None]
  - PANCREATITIS [None]
